FAERS Safety Report 9351700 (Version 2)
Quarter: 2013Q4

REPORT INFORMATION
  Report Type: Spontaneous
  Country: GB (occurrence: GB)
  Receive Date: 20130617
  Receipt Date: 20131206
  Transmission Date: 20140711
  Serious: Yes (Hospitalization)
  Sender: FDA-Public Use
  Company Number: GB-ACTAVIS-2013-10770

PATIENT
  Age: 72 Year
  Sex: Female

DRUGS (3)
  1. CALCIUM FOLINATE (UNKNOWN) [Suspect]
     Indication: PRODUCT USED FOR UNKNOWN INDICATION
     Dosage: UNK
     Route: 065
     Dates: start: 20130516
  2. IRINOTECAN (UNKNOWN) [Suspect]
     Indication: PRODUCT USED FOR UNKNOWN INDICATION
     Dosage: 30MG/15ML, UNK
     Route: 042
     Dates: start: 20130516
  3. GLUCOSE [Suspect]
     Indication: MEDICATION DILUTION
     Dosage: 250 ML, 1 BAG
     Route: 042
     Dates: start: 20130516

REACTIONS (5)
  - Infection [Recovered/Resolved]
  - Pyrexia [Recovered/Resolved]
  - Hypotension [Recovered/Resolved]
  - Chills [Recovered/Resolved]
  - Malaise [Recovered/Resolved]
